FAERS Safety Report 5626359-5 (Version None)
Quarter: 2008Q1

REPORT INFORMATION
  Report Type: 
  Country: None (occurrence: None)
  Receive Date: 20080213
  Receipt Date: 20080213
  Transmission Date: 20080703
  Serious: Yes (Life-Threatening)
  Sender: FDA-Public Use
  Company Number: None

PATIENT
  Age: 44 Year
  Sex: Male
  Weight: 81.6475 kg

DRUGS (1)
  1. COZAAR [Suspect]
     Indication: AUTOSOMAL CHROMOSOME ANOMALY
     Dosage: 25 MG  DAILY  PO
     Route: 048
     Dates: start: 20080201, end: 20080207

REACTIONS (2)
  - HYPERTENSION [None]
  - TACHYCARDIA [None]
